FAERS Safety Report 15860427 (Version 1)
Quarter: 2019Q1

REPORT INFORMATION
  Report Type: Spontaneous
  Country: NL (occurrence: NL)
  Receive Date: 20190123
  Receipt Date: 20190123
  Transmission Date: 20190417
  Serious: Yes (Other)
  Sender: FDA-Public Use
  Company Number: PHHY2019NL014996

PATIENT

DRUGS (1)
  1. DOCETAXEL. [Suspect]
     Active Substance: DOCETAXEL
     Indication: PROSTATE CANCER
     Dosage: UNK UNK, CYCLIC (4 CYCLES)
     Route: 065
     Dates: start: 201804

REACTIONS (3)
  - Androgen receptor gene overexpression [Unknown]
  - Prostate cancer [Unknown]
  - PTEN gene mutation [Unknown]

NARRATIVE: CASE EVENT DATE: 201810
